FAERS Safety Report 20896944 (Version 2)
Quarter: 2022Q2

REPORT INFORMATION
  Report Type: Spontaneous
  Country: JP (occurrence: JP)
  Receive Date: 20220531
  Receipt Date: 20220615
  Transmission Date: 20220721
  Serious: Yes (Other)
  Sender: FDA-Public Use
  Company Number: JP-TEVA-2022-JP-2041207

PATIENT
  Age: 92 Year
  Sex: Female
  Weight: 50.6 kg

DRUGS (11)
  1. WARFARIN [Interacting]
     Active Substance: WARFARIN
     Indication: Anticoagulant therapy
     Dosage: 1 MILLIGRAM DAILY;
     Route: 065
  2. WARFARIN [Interacting]
     Active Substance: WARFARIN
     Dosage: .5 MILLIGRAM DAILY;
     Route: 065
  3. TOLVAPTAN [Interacting]
     Active Substance: TOLVAPTAN
     Indication: Cardiac failure chronic
     Dosage: 15 MILLIGRAM DAILY;
     Route: 065
  4. TOLVAPTAN [Interacting]
     Active Substance: TOLVAPTAN
     Dosage: 7.5 MILLIGRAM DAILY;
     Route: 065
  5. AZOSEMIDE [Concomitant]
     Active Substance: AZOSEMIDE
     Indication: Product used for unknown indication
     Dosage: 30 MILLIGRAM DAILY;
     Route: 065
  6. AZOSEMIDE [Concomitant]
     Active Substance: AZOSEMIDE
     Dosage: 60 MILLIGRAM DAILY;
     Route: 065
  7. SPIRONOLACTONE [Concomitant]
     Active Substance: SPIRONOLACTONE
     Indication: Product used for unknown indication
     Dosage: 25 MILLIGRAM DAILY;
     Route: 048
  8. CARPERITIDE [Concomitant]
     Active Substance: CARPERITIDE
     Indication: Pleural effusion
     Dosage: 0.0125 UG/MIN/KG
     Route: 042
  9. CARPERITIDE [Concomitant]
     Active Substance: CARPERITIDE
     Indication: Oedema peripheral
  10. FUROSEMIDE [Concomitant]
     Active Substance: FUROSEMIDE
     Indication: Oedema peripheral
     Dosage: 40 MILLIGRAM DAILY;
     Route: 042
  11. FUROSEMIDE [Concomitant]
     Active Substance: FUROSEMIDE
     Indication: Pleural effusion

REACTIONS (4)
  - International normalised ratio increased [Recovered/Resolved]
  - Prothrombin time prolonged [Recovered/Resolved]
  - Drug interaction [Recovered/Resolved]
  - Ischaemic stroke [Recovered/Resolved]
